FAERS Safety Report 10048243 (Version 2)
Quarter: 2014Q2

REPORT INFORMATION
  Report Type: Spontaneous
  Country: US (occurrence: US)
  Receive Date: 20140331
  Receipt Date: 20140509
  Transmission Date: 20141212
  Serious: No
  Sender: FDA-Public Use
  Company Number: US-PFIZER INC-2014088212

PATIENT
  Age: 11 Year
  Sex: Female

DRUGS (3)
  1. GENOTROPIN [Suspect]
     Indication: GROWTH HORMONE DEFICIENCY
     Dosage: UNK
     Dates: end: 201312
  2. PROMETHAZINE HYDROCHLORIDE [Suspect]
     Indication: COUGH
     Dosage: UNK
     Dates: end: 201312
  3. CELEXA [Suspect]
     Indication: ANXIETY
     Dosage: UNK
     Dates: end: 201312

REACTIONS (2)
  - Somnolence [Recovered/Resolved]
  - Confusional state [Recovered/Resolved]
